FAERS Safety Report 7319994-X (Version None)
Quarter: 2011Q1

REPORT INFORMATION
  Report Type: 
  Country: None (occurrence: None)
  Receive Date: 20110228
  Receipt Date: 20110222
  Transmission Date: 20110831
  Serious: Yes (Hospitalization)
  Sender: FDA-Public Use
  Company Number: SE-PFIZER INC-2011038130

PATIENT
  Age: 68 Year
  Sex: Female

DRUGS (17)
  1. METFORMIN HCL [Suspect]
     Indication: DIABETES MELLITUS
     Dosage: 2.5 G, 1X/DAY
     Route: 048
     Dates: end: 20101225
  2. PROPAVAN [Concomitant]
     Dosage: 25 MG, UNK
  3. MINDIAB [Concomitant]
     Dosage: 5 MG, UNK
  4. INDERAL LA [Concomitant]
     Dosage: 80 MG, UNK
  5. TRIOBE [Concomitant]
     Dosage: UNK
  6. ALBYL MINOR [Concomitant]
     Dosage: UNK
  7. TAVEGYL [Concomitant]
     Dosage: 1 MG, UNK
  8. ACETAMINOPHEN W/ CODEINE [Concomitant]
     Dosage: UNK
  9. ZOLPIDEM TARTRATE [Concomitant]
     Dosage: 10 MG, UNK
  10. XENICAL [Concomitant]
     Dosage: 120 MG, UNK
  11. LIPITOR [Suspect]
     Dosage: 20 MG, 1X/DAY
     Route: 048
     Dates: end: 20101225
  12. DIAZEPAM [Concomitant]
     Dosage: 2 MG, UNK
  13. FURIX [Concomitant]
     Dosage: 20 MG, UNK
  14. ENALAPRIL MALEATE [Suspect]
     Indication: ESSENTIAL HYPERTENSION
     Dosage: 20 MG, 1X/DAY
     Dates: end: 20101225
  15. OMEPRAZOLE [Concomitant]
     Dosage: UNK
  16. MICARDIS [Concomitant]
     Dosage: 80 MG, UNK
  17. ZYPREXA [Concomitant]
     Dosage: 20 MG, UNK

REACTIONS (3)
  - LACTIC ACIDOSIS [None]
  - RHABDOMYOLYSIS [None]
  - RENAL FAILURE [None]
